FAERS Safety Report 5599770-9 (Version None)
Quarter: 2008Q1

REPORT INFORMATION
  Report Type: 
  Country: None (occurrence: None)
  Receive Date: 20080118
  Receipt Date: 20080118
  Transmission Date: 20080703
  Serious: Yes (Other)
  Sender: FDA-Public Use
  Company Number: None

PATIENT

DRUGS (1)
  1. METHADON HCL INJ [Suspect]
     Indication: PAIN MANAGEMENT
     Dates: start: 20071201, end: 20080105

REACTIONS (5)
  - CATHETER RELATED COMPLICATION [None]
  - CATHETER SITE RELATED REACTION [None]
  - INADEQUATE ANALGESIA [None]
  - NODULE [None]
  - PHARMACEUTICAL PRODUCT COMPLAINT [None]
